FAERS Safety Report 4688452-3 (Version None)
Quarter: 2005Q2

REPORT INFORMATION
  Report Type: 
  Country: None (occurrence: None)
  Receive Date: 20050613
  Receipt Date: 20050608
  Transmission Date: 20051028
  Serious: Yes (Life-Threatening)
  Sender: FDA-Public Use
  Company Number: PHBS2005JP08069

PATIENT
  Sex: Female

DRUGS (4)
  1. AROMASIN [Concomitant]
  2. XELODA [Concomitant]
  3. MS CONTIN [Concomitant]
  4. AREDIA [Suspect]
     Indication: METASTASES TO BONE

REACTIONS (1)
  - STEVENS-JOHNSON SYNDROME [None]
